FAERS Safety Report 8881420 (Version 2)
Quarter: 2012Q4

REPORT INFORMATION
  Report Type: 
  Country: FR (occurrence: FR)
  Receive Date: 20121102
  Receipt Date: 20121106
  Transmission Date: 20130627
  Serious: Yes (Hospitalization)
  Sender: FDA-Public Use
  Company Number: FR-JNJFOC-20121016763

PATIENT
  Age: 61 Year
  Sex: Female

DRUGS (7)
  1. XARELTO [Suspect]
     Indication: PRODUCT USED FOR UNKNOWN INDICATION
     Route: 048
     Dates: start: 20121005, end: 20121018
  2. TINZAPARIN SODIUM [Concomitant]
     Route: 065
  3. KEPPRA [Concomitant]
     Route: 065
  4. EPITOMAX [Concomitant]
     Route: 065
  5. DAFALGAN [Concomitant]
     Route: 065
  6. SERESTA [Concomitant]
     Route: 065
  7. LEVOTHYROX [Concomitant]
     Route: 065

REACTIONS (2)
  - Pulmonary embolism [Recovering/Resolving]
  - Pain in extremity [Unknown]
